FAERS Safety Report 7246873-9 (Version None)
Quarter: 2011Q1

REPORT INFORMATION
  Report Type: 
  Country: None (occurrence: None)
  Receive Date: 20110127
  Receipt Date: 20110117
  Transmission Date: 20110831
  Serious: Yes (Hospitalization, Other)
  Sender: FDA-Public Use
  Company Number: PHHY2010JP88619

PATIENT
  Sex: Male
  Weight: 74 kg

DRUGS (40)
  1. DIOVAN [Suspect]
     Dosage: 120 MG IN 2 SEPARATE DOSES DAILY
     Route: 048
     Dates: start: 20090515, end: 20091203
  2. VESTURIT L [Concomitant]
     Dosage: 200 MG
     Route: 048
     Dates: start: 20071216, end: 20080106
  3. CILOSTAZOL [Concomitant]
     Dosage: 100 MG
     Route: 048
     Dates: start: 20080928
  4. AMARYL [Concomitant]
     Dosage: 0.5 MG
     Route: 048
  5. ACTOS [Concomitant]
     Dosage: 15 MG
     Route: 048
  6. EPALRESTAT [Concomitant]
     Dosage: 150 MG
     Route: 048
     Dates: start: 20080220
  7. VANARL N [Concomitant]
     Dosage: 300 MG
     Route: 048
     Dates: start: 20080116, end: 20080213
  8. AMARYL [Concomitant]
     Dosage: 1 MG
     Route: 048
     Dates: start: 20071216
  9. MELBIN [Concomitant]
     Dosage: 250 MG
     Route: 048
     Dates: start: 20080417, end: 20080519
  10. ACTOS [Concomitant]
     Dosage: 30 MG
     Route: 048
  11. ACTOS [Concomitant]
     Dosage: 7.5 MG
     Route: 048
     Dates: end: 20091119
  12. DIOVAN [Suspect]
     Dosage: 80 MG, QD
     Route: 048
     Dates: start: 20080229, end: 20081126
  13. BLOPRESS [Concomitant]
     Indication: HYPERTENSION
     Dosage: 8 MG
     Route: 048
     Dates: start: 20070513, end: 20080106
  14. ACTOS [Concomitant]
     Dosage: 22.5 MG
     Route: 048
     Dates: start: 20080107
  15. PREDONINE [Concomitant]
     Dosage: 15 MG
     Route: 048
     Dates: start: 20091015
  16. BETAMETHASONE [Concomitant]
     Dosage: 1.5 MG
     Route: 048
  17. DIOVAN [Suspect]
     Indication: HYPERTENSION
     Dosage: 40 MG, QID
     Route: 048
     Dates: start: 20080107, end: 20080228
  18. DIOVAN [Suspect]
     Dosage: 80 MG, BID
     Route: 048
     Dates: start: 20081127, end: 20090514
  19. VOLTAREN-XR [Concomitant]
     Dosage: 75 MG
     Route: 048
     Dates: start: 20100122
  20. BEZATATE [Concomitant]
     Dosage: 200 MG
     Route: 048
     Dates: start: 20071216, end: 20080106
  21. AMARYL [Concomitant]
     Dosage: 1 MG
     Route: 048
  22. PREDONINE [Concomitant]
     Dosage: 10 MG
     Route: 048
  23. BETAMETHASONE [Concomitant]
     Dosage: 0.75 MG
     Route: 048
     Dates: end: 20100114
  24. JANUVIA [Concomitant]
     Dosage: 50 MG
     Route: 048
     Dates: start: 20091226
  25. DIOVAN [Suspect]
     Dosage: 80 MG, BID
     Route: 048
     Dates: start: 20091204, end: 20100129
  26. PREDONINE [Concomitant]
     Dosage: 5 MG
     Route: 048
     Dates: end: 20091121
  27. LOXONIN [Concomitant]
     Dosage: 180 MG
     Route: 048
     Dates: start: 20091024
  28. BETAMETHASONE [Concomitant]
     Dosage: 1 MG
     Route: 048
  29. URSO 250 [Concomitant]
     Dosage: 300 MG
     Route: 048
     Dates: start: 20080118, end: 20080213
  30. AMARYL [Concomitant]
     Dosage: 1.5 MG
     Route: 048
  31. BETAMETHASONE [Concomitant]
     Dosage: 2 MG
     Route: 048
     Dates: start: 20091127
  32. BETAMETHASONE [Concomitant]
     Dosage: 2 MG
     Route: 048
  33. PLETAL [Concomitant]
     Dosage: 100 MG
     Route: 048
     Dates: start: 20070613, end: 20080927
  34. AMARYL [Concomitant]
     Dosage: 2 MG
     Route: 048
  35. ACTOS [Concomitant]
     Dosage: 15 MG
     Route: 048
  36. CELECOXIB [Concomitant]
     Dosage: 200 MG
     Route: 048
     Dates: start: 20091120, end: 20091126
  37. AMLODIPINE [Concomitant]
     Indication: HYPERTENSION
     Dosage: 5 MG
     Route: 048
     Dates: start: 20090515
  38. ZETIA [Concomitant]
     Dosage: 10 MG
     Route: 048
     Dates: start: 20081129, end: 20090403
  39. ACTOS [Concomitant]
     Dosage: 30 MG
     Route: 048
  40. LOXONIN [Concomitant]
     Dosage: 180 MG
     Route: 048
     Dates: end: 20091203

REACTIONS (3)
  - SERONEGATIVE ARTHRITIS [None]
  - ARTHRALGIA [None]
  - JOINT SWELLING [None]
